FAERS Safety Report 10639983 (Version 1)
Quarter: 2014Q4

REPORT INFORMATION
  Report Type: Spontaneous
  Country: GB (occurrence: GB)
  Receive Date: 20141209
  Receipt Date: 20141209
  Transmission Date: 20150529
  Serious: Yes (Death, Hospitalization)
  Sender: FDA-Public Use
  Company Number: GB-ELI_LILLY_AND_COMPANY-GB201412001816

PATIENT
  Age: 63 Year
  Sex: Male

DRUGS (2)
  1. CISPLATIN. [Concomitant]
     Active Substance: CISPLATIN
     Indication: MESOTHELIOMA
     Route: 065
  2. PEMETREXED [Suspect]
     Active Substance: PEMETREXED
     Indication: MESOTHELIOMA
     Route: 065

REACTIONS (3)
  - Cardiac arrest [Fatal]
  - Neutropenia [Unknown]
  - Tachycardia [Unknown]
